FAERS Safety Report 9205738 (Version 3)
Quarter: 2013Q3

REPORT INFORMATION
  Report Type: Spontaneous
  Country: SA (occurrence: None)
  Receive Date: 20130401
  Receipt Date: 20130911
  Transmission Date: 20140515
  Serious: Yes (Death)
  Sender: FDA-Public Use
  Company Number: 1646927

PATIENT
  Sex: 0

DRUGS (3)
  1. NORADRENALINE TARTRATE [Suspect]
     Indication: VASCULAR RESISTANCE SYSTEMIC INCREASED
     Dates: start: 20110725, end: 20110729
  2. PENICILLIN [Concomitant]
  3. GENTAMICIN [Concomitant]

REACTIONS (4)
  - Unevaluable event [None]
  - Sepsis [None]
  - Disease complication [None]
  - Drug ineffective [None]
